FAERS Safety Report 7656478-3 (Version None)
Quarter: 2011Q3

REPORT INFORMATION
  Report Type: 
  Country: None (occurrence: None)
  Receive Date: 20110804
  Receipt Date: 20100716
  Transmission Date: 20111222
  Serious: No
  Sender: FDA-Public Use
  Company Number: US-BAUSCH-2010BL003871

PATIENT
  Age: 32 Year
  Sex: Female

DRUGS (1)
  1. OPCON-A [Suspect]
     Indication: ALLERGY TO ANIMAL
     Route: 047
     Dates: start: 20100715, end: 20100716

REACTIONS (1)
  - INSTILLATION SITE PAIN [None]
